FAERS Safety Report 16398147 (Version 1)
Quarter: 2019Q2

REPORT INFORMATION
  Report Type: Spontaneous
  Country: US (occurrence: US)
  Receive Date: 20190606
  Receipt Date: 20190606
  Transmission Date: 20190711
  Serious: No
  Sender: FDA-Public Use
  Company Number: US-HORIZON-DUE-0288-2019

PATIENT
  Age: 70 Year
  Sex: Male

DRUGS (1)
  1. DUEXIS [Suspect]
     Active Substance: FAMOTIDINE\IBUPROFEN
     Indication: ARTHRITIS
     Dosage: AS NEEDED
     Route: 048

REACTIONS (5)
  - Glycosylated haemoglobin increased [Unknown]
  - Inability to afford medication [Not Recovered/Not Resolved]
  - Insurance issue [Not Recovered/Not Resolved]
  - Intentional product use issue [Unknown]
  - Off label use [Unknown]
